FAERS Safety Report 15607600 (Version 2)
Quarter: 2018Q4

REPORT INFORMATION
  Report Type: Spontaneous
  Country: TW (occurrence: TW)
  Receive Date: 20181112
  Receipt Date: 20181114
  Transmission Date: 20190205
  Serious: Yes (Hospitalization, Other)
  Sender: FDA-Public Use
  Company Number: TW-PFIZER INC-2018451324

PATIENT
  Age: 50 Year
  Sex: Male

DRUGS (3)
  1. XYNTHA [Suspect]
     Active Substance: ANTIHEMOPHILIC FACTOR, HUMAN RECOMBINANT RESIDUES 743-1636 DELETED
     Indication: PROPHYLAXIS
     Dosage: 2000 IU, ON-DEMAND
     Route: 042
  2. XYNTHA [Suspect]
     Active Substance: ANTIHEMOPHILIC FACTOR, HUMAN RECOMBINANT RESIDUES 743-1636 DELETED
     Dosage: 3000 IU, 3X/DAY(EVERY 8HOURS)
     Route: 042
     Dates: start: 20181101
  3. XYNTHA [Suspect]
     Active Substance: ANTIHEMOPHILIC FACTOR, HUMAN RECOMBINANT RESIDUES 743-1636 DELETED
     Dosage: 3000 IU, 1X/DAY(QD)
     Route: 042

REACTIONS (8)
  - Haemorrhage [Recovering/Resolving]
  - Skin laceration [Recovering/Resolving]
  - Joint swelling [Recovering/Resolving]
  - Altered state of consciousness [Recovering/Resolving]
  - Discomfort [Recovering/Resolving]
  - Dizziness [Recovering/Resolving]
  - Haemorrhage intracranial [Recovering/Resolving]
  - Skin abrasion [Unknown]

NARRATIVE: CASE EVENT DATE: 20181031
